FAERS Safety Report 7031389-5 (Version None)
Quarter: 2010Q4

REPORT INFORMATION
  Report Type: 
  Country: None (occurrence: None)
  Receive Date: 20101006
  Receipt Date: 20100928
  Transmission Date: 20110411
  Serious: Yes (Death, Hospitalization)
  Sender: FDA-Public Use
  Company Number: US-AMGEN-QUU438182

PATIENT
  Sex: Male
  Weight: 49.5 kg

DRUGS (2)
  1. NPLATE [Suspect]
     Indication: IDIOPATHIC THROMBOCYTOPENIC PURPURA
     Dates: start: 20081216, end: 20090827
  2. DOXIMYCIN [Suspect]

REACTIONS (3)
  - HIV INFECTION [None]
  - IDIOPATHIC THROMBOCYTOPENIC PURPURA [None]
  - NON-HODGKIN'S LYMPHOMA [None]
